FAERS Safety Report 4356456-6 (Version None)
Quarter: 2004Q2

REPORT INFORMATION
  Report Type: 
  Country: None (occurrence: None)
  Receive Date: 20040507
  Receipt Date: 20040421
  Transmission Date: 20050107
  Serious: Yes (Hospitalization)
  Sender: FDA-Public Use
  Company Number: 28273

PATIENT
  Sex: Female

DRUGS (1)
  1. FLUORESCITE [Suspect]
     Dates: start: 20040421, end: 20040421

REACTIONS (5)
  - CHEST PAIN [None]
  - COMA [None]
  - DYSPNOEA [None]
  - HYPERHIDROSIS [None]
  - HYPOAESTHESIA [None]
